FAERS Safety Report 9501013 (Version 1)
Quarter: 2013Q1

REPORT INFORMATION
  Report Type: Spontaneous
  Country: US (occurrence: None)
  Receive Date: 20130107
  Receipt Date: 20130107
  Transmission Date: 20140127
  Serious: Yes (Other)
  Sender: FDA-Public Use
  Company Number: PHHY2012US098497

PATIENT
  Age: 44 Year
  Sex: Female
  Weight: 113 kg

DRUGS (2)
  1. GILENYA [Suspect]
     Indication: RELAPSING-REMITTING MULTIPLE SCLEROSIS
     Route: 048
  2. IMITREX (SUMATRIPTAN SUCCINATE) [Concomitant]

REACTIONS (2)
  - Herpes zoster [None]
  - Dry skin [None]
